FAERS Safety Report 19298231 (Version 1)
Quarter: 2021Q2

REPORT INFORMATION
  Report Type: Spontaneous
  Country: IT (occurrence: IT)
  Receive Date: 20210524
  Receipt Date: 20210524
  Transmission Date: 20210717
  Serious: Yes (Other)
  Sender: FDA-Public Use
  Company Number: IT-AKCEA THERAPEUTICS, INC.-2021IS001281

PATIENT
  Age: 67 Year
  Sex: Male
  Weight: 60.14 kg

DRUGS (5)
  1. TEGSEDI [Suspect]
     Active Substance: INOTERSEN SODIUM
     Indication: HEREDITARY NEUROPATHIC AMYLOIDOSIS
     Route: 065
     Dates: start: 20190204
  2. LYRICA [Concomitant]
     Active Substance: PREGABALIN
     Route: 065
  3. VITAMIN A /00056001/ [Concomitant]
     Active Substance: RETINOL
     Route: 048
  4. ISSD (INTEGRATED SYRINGE SAFETY DEVICE) [Suspect]
     Active Substance: DEVICE
  5. TEGSEDI [Suspect]
     Active Substance: INOTERSEN SODIUM
     Route: 065

REACTIONS (3)
  - Dysentery [Not Recovered/Not Resolved]
  - Overdose [Unknown]
  - Hypotension [Recovered/Resolved]

NARRATIVE: CASE EVENT DATE: 20190204
